FAERS Safety Report 16327526 (Version 1)
Quarter: 2019Q2

REPORT INFORMATION
  Report Type: Spontaneous
  Country: US (occurrence: US)
  Receive Date: 20190517
  Receipt Date: 20190517
  Transmission Date: 20190711
  Serious: No
  Sender: FDA-Public Use
  Company Number: US-BIOMARINAP-US-2019-122732

PATIENT
  Sex: Female
  Weight: 67 kg

DRUGS (3)
  1. NAGLAZYME [Suspect]
     Active Substance: GALSULFASE
     Indication: MUCOPOLYSACCHARIDOSIS VI
     Dosage: 65 MILLIGRAM, QW
     Route: 042
     Dates: start: 20160519
  2. TYLENOL [Concomitant]
     Active Substance: ACETAMINOPHEN
     Indication: PREMEDICATION
  3. ZYRTEC [Concomitant]
     Active Substance: CETIRIZINE HYDROCHLORIDE
     Indication: PREMEDICATION
     Dosage: 10 MILLIGRAM

REACTIONS (5)
  - Catheter site swelling [Recovering/Resolving]
  - Vascular access complication [Recovered/Resolved]
  - Infusion site discomfort [Recovering/Resolving]
  - Catheter site rash [Unknown]
  - Device occlusion [Recovered/Resolved]
